FAERS Safety Report 15611047 (Version 1)
Quarter: 2018Q4

REPORT INFORMATION
  Report Type: Spontaneous
  Country: US (occurrence: US)
  Receive Date: 20181113
  Receipt Date: 20181113
  Transmission Date: 20190205
  Serious: No
  Sender: FDA-Public Use
  Company Number: US-ROCHE-2025877

PATIENT
  Age: 67 Year
  Sex: Female
  Weight: 90.8 kg

DRUGS (3)
  1. HERCEPTIN [Suspect]
     Active Substance: TRASTUZUMAB
     Indication: BREAST CANCER METASTATIC
     Route: 042
     Dates: start: 20171023
  2. DEXAMETHASONE. [Concomitant]
     Active Substance: DEXAMETHASONE
     Route: 042
     Dates: start: 20171113
  3. HERCEPTIN [Suspect]
     Active Substance: TRASTUZUMAB
     Route: 042
     Dates: start: 20171113

REACTIONS (19)
  - Pallor [Recovered/Resolved]
  - Hot flush [Unknown]
  - Dysphonia [Recovered/Resolved]
  - Erythema [Recovered/Resolved]
  - Nasal congestion [Not Recovered/Not Resolved]
  - Sneezing [Recovered/Resolved]
  - Vitreous floaters [Not Recovered/Not Resolved]
  - Rhinorrhoea [Not Recovered/Not Resolved]
  - Body temperature increased [Recovered/Resolved]
  - Nausea [Recovered/Resolved]
  - Tremor [Recovered/Resolved]
  - Photopsia [Not Recovered/Not Resolved]
  - Chills [Recovered/Resolved]
  - Dry mouth [Not Recovered/Not Resolved]
  - Swelling [Unknown]
  - Cough [Recovered/Resolved]
  - Diarrhoea [Recovered/Resolved]
  - Headache [Recovered/Resolved]
  - Insomnia [Not Recovered/Not Resolved]

NARRATIVE: CASE EVENT DATE: 20171023
